FAERS Safety Report 13076052 (Version 4)
Quarter: 2017Q1

REPORT INFORMATION
  Report Type: Spontaneous
  Country: JP (occurrence: JP)
  Receive Date: 20161230
  Receipt Date: 20170316
  Transmission Date: 20170428
  Serious: Yes (Other)
  Sender: FDA-Public Use
  Company Number: JP-ABBVIE-16P-087-1805860-00

PATIENT
  Age: 43 Year
  Sex: Female

DRUGS (1)
  1. LEUPLIN [Suspect]
     Active Substance: LEUPROLIDE ACETATE
     Indication: MENORRHAGIA
     Dosage: 1.88 MG, Q4WEEKS
     Route: 058
     Dates: start: 20160314, end: 20160509

REACTIONS (4)
  - Hyperthermia [Recovered/Resolved]
  - Rhinorrhoea [Recovered/Resolved]
  - Hepatic enzyme increased [Recovered/Resolved]
  - Conjunctivitis allergic [Recovered/Resolved]

NARRATIVE: CASE EVENT DATE: 20160315
